FAERS Safety Report 7012025-0 (Version None)
Quarter: 2010Q3

REPORT INFORMATION
  Report Type: 
  Country: None (occurrence: None)
  Receive Date: 20100924
  Receipt Date: 20100916
  Transmission Date: 20110219
  Serious: Yes (Other)
  Sender: FDA-Public Use
  Company Number: US-US-EMD SERONO, INC.-7017235

PATIENT
  Sex: Female
  Weight: 86 kg

DRUGS (1)
  1. REBIF [Suspect]
     Indication: MULTIPLE SCLEROSIS
     Dates: start: 20070101, end: 20100201

REACTIONS (4)
  - CENTRAL NERVOUS SYSTEM LESION [None]
  - DISEASE RECURRENCE [None]
  - LIMB DISCOMFORT [None]
  - OPTIC NEURITIS [None]
